FAERS Safety Report 4625592-9 (Version None)
Quarter: 2005Q1

REPORT INFORMATION
  Report Type: 
  Country: None (occurrence: None)
  Receive Date: 20050330
  Receipt Date: 20050315
  Transmission Date: 20050727
  Serious: Yes (Death, Hospitalization, Disabling)
  Sender: FDA-Public Use
  Company Number: FR_050306066

PATIENT
  Age: 61 Year
  Sex: Male

DRUGS (1)
  1. GEMZAR [Suspect]
     Indication: ADENOCARCINOMA PANCREAS
     Dosage: 1 G/M2 OTHER
     Dates: start: 20010501

REACTIONS (16)
  - ANAEMIA [None]
  - ASTHENIA [None]
  - BLOOD SODIUM INCREASED [None]
  - DYSPNOEA [None]
  - FLUID RETENTION [None]
  - GASTROINTESTINAL DISORDER [None]
  - HAEMODIALYSIS [None]
  - HAEMOLYTIC URAEMIC SYNDROME [None]
  - HYPERTENSION [None]
  - HYPOTENSION [None]
  - MALIGNANT NEOPLASM PROGRESSION [None]
  - NEPHROTIC SYNDROME [None]
  - OLIGURIA [None]
  - ORTHOPNOEA [None]
  - PLATELET COUNT DECREASED [None]
  - RENAL FAILURE ACUTE [None]
